FAERS Safety Report 14838019 (Version 2)
Quarter: 2018Q2

REPORT INFORMATION
  Report Type: Spontaneous
  Country: US (occurrence: US)
  Receive Date: 20180502
  Receipt Date: 20180502
  Transmission Date: 20180711
  Serious: Yes (Other)
  Sender: FDA-Public Use
  Company Number: US-SA-2018SA118468

PATIENT
  Age: 80 Year
  Sex: Female
  Weight: 67.6 kg

DRUGS (11)
  1. LATANOPROST. [Concomitant]
     Active Substance: LATANOPROST
  2. PREDNISONE. [Concomitant]
     Active Substance: PREDNISONE
  3. ARAVA [Suspect]
     Active Substance: LEFLUNOMIDE
     Indication: RHEUMATOID ARTHRITIS
     Route: 048
  4. GOLD [Suspect]
     Active Substance: GOLD
     Indication: RHEUMATOID ARTHRITIS
     Route: 065
  5. SULFASALAZINE. [Suspect]
     Active Substance: SULFASALAZINE
     Indication: RHEUMATOID ARTHRITIS
     Route: 065
  6. XELJANZ [Suspect]
     Active Substance: TOFACITINIB CITRATE
     Indication: CYSTITIS
     Route: 048
     Dates: start: 20170805
  7. PLAQUENIL [Suspect]
     Active Substance: HYDROXYCHLOROQUINE SULFATE
     Indication: RHEUMATOID ARTHRITIS
     Route: 048
  8. METHOTREXATE. [Suspect]
     Active Substance: METHOTREXATE
     Indication: RHEUMATOID ARTHRITIS
     Route: 065
  9. HUMIRA [Suspect]
     Active Substance: ADALIMUMAB
     Indication: RHEUMATOID ARTHRITIS
     Route: 058
  10. ENBREL [Suspect]
     Active Substance: ETANERCEPT
     Indication: RHEUMATOID ARTHRITIS
     Route: 065
  11. ACTHAR [Concomitant]
     Active Substance: CORTICOTROPIN
     Route: 065

REACTIONS (12)
  - Visual impairment [Unknown]
  - Abdominal distension [Unknown]
  - Blood glucose increased [Unknown]
  - Insomnia [Unknown]
  - Cystitis [Unknown]
  - Swelling [Unknown]
  - Diarrhoea [Unknown]
  - Stomatitis [Unknown]
  - Rheumatoid arthritis [Recovering/Resolving]
  - Rash [Unknown]
  - Osteopenia [Unknown]
  - Drug intolerance [Unknown]
